FAERS Safety Report 8257361-5 (Version None)
Quarter: 2012Q1

REPORT INFORMATION
  Report Type: 
  Country: None (occurrence: None)
  Receive Date: 20120330
  Receipt Date: 20120330
  Transmission Date: 20120608
  Serious: Yes (Life-Threatening, Hospitalization, Disabling)
  Sender: FDA-Public Use
  Company Number: None

PATIENT
  Age: 73 Year
  Sex: Female
  Weight: 81.6475 kg

DRUGS (1)
  1. PREDNISONE TAB [Suspect]
     Indication: POLYMYALGIA RHEUMATICA
     Dosage: 20 MG DAILY ORAL
     Route: 048
     Dates: start: 20101201, end: 20110601

REACTIONS (9)
  - WEIGHT INCREASED [None]
  - ALOPECIA [None]
  - CUSHINGOID [None]
  - CONSTIPATION [None]
  - THINKING ABNORMAL [None]
  - POOR QUALITY SLEEP [None]
  - RASH PUSTULAR [None]
  - ERYTHEMA [None]
  - OEDEMA PERIPHERAL [None]
